FAERS Safety Report 21760889 (Version 1)
Quarter: 2022Q4

REPORT INFORMATION
  Report Type: Spontaneous
  Country: US (occurrence: US)
  Receive Date: 20221221
  Receipt Date: 20221221
  Transmission Date: 20230113
  Serious: Yes (Hospitalization)
  Sender: FDA-Public Use
  Company Number: US-drreddys-SPO/USA/22/0158239

PATIENT
  Age: 62 Year
  Sex: Male

DRUGS (2)
  1. GLIMEPIRIDE [Suspect]
     Active Substance: GLIMEPIRIDE
     Indication: Blood glucose decreased
     Dates: start: 20220801, end: 20221203
  2. LOVASTATIN [Concomitant]
     Active Substance: LOVASTATIN
     Indication: Hypertension

REACTIONS (1)
  - Palpitations [Unknown]
